FAERS Safety Report 24849940 (Version 2)
Quarter: 2025Q1

REPORT INFORMATION
  Report Type: Report from Study
  Country: JP (occurrence: JP)
  Receive Date: 20250116
  Receipt Date: 20250226
  Transmission Date: 20250408
  Serious: Yes (Death)
  Sender: AKEBIA THERAPEUTICS
  Company Number: JP-MTPC-MTPC2025-0000149

PATIENT
  Age: 74 Year
  Sex: Female
  Weight: 53 kg

DRUGS (5)
  1. VADADUSTAT [Suspect]
     Active Substance: VADADUSTAT
     Indication: Nephrogenic anaemia
     Dosage: 150 MILLIGRAM, QD
     Route: 048
     Dates: start: 20220826, end: 20221028
  2. VADADUSTAT [Suspect]
     Active Substance: VADADUSTAT
     Dosage: 300 MILLIGRAM, QD
     Route: 048
     Dates: start: 20221029, end: 20221226
  3. DARBEPOETIN ALFA [Concomitant]
     Active Substance: DARBEPOETIN ALFA
     Indication: Nephrogenic anaemia
     Dosage: 60 MICROGRAM, Q2WEEKS
     Route: 042
     Dates: start: 20221119, end: 20221124
  4. ROXADUSTAT [Concomitant]
     Active Substance: ROXADUSTAT
     Indication: Nephrogenic anaemia
     Route: 065
     Dates: start: 20221227, end: 20230131
  5. TOPIROXOSTAT [Concomitant]
     Active Substance: TOPIROXOSTAT
     Indication: Illness
     Dosage: 40 MILLIGRAM, QD
     Route: 048

REACTIONS (1)
  - Rheumatoid arthritis-associated interstitial lung disease [Fatal]

NARRATIVE: CASE EVENT DATE: 20230226
